FAERS Safety Report 9208748 (Version 2)
Quarter: 2013Q2

REPORT INFORMATION
  Report Type: Spontaneous
  Country: US (occurrence: US)
  Receive Date: 20130404
  Receipt Date: 20130507
  Transmission Date: 20140414
  Serious: Yes (Hospitalization)
  Sender: FDA-Public Use
  Company Number: US-PFIZER INC-2013102010

PATIENT
  Age: 89 Year
  Sex: Female

DRUGS (14)
  1. VERAPAMIL HCL [Suspect]
     Dosage: UNK
  2. CHERATUSSIN AC [Concomitant]
     Indication: COUGH
     Dosage: UNK, AS NEEDED, 100-10 MG/5ML SYRUP 10 ML EVERY 6 HRS
  3. FLUCONAZOLE [Concomitant]
     Dosage: 150 MG, 1X/DAY
  4. CIPROFLOXACIN HCL [Concomitant]
     Dosage: 500 MG, 1 TABLET EVERY 12 HRS
  5. SERTRALINE HCL [Concomitant]
     Dosage: 50 MG, 1X/DAY (EVERY DAY)
     Route: 048
  6. LORAZEPAM [Concomitant]
     Dosage: 1 MG, 1 TABLET 3X/DAY (PRN)
     Route: 048
  7. LORAZEPAM [Concomitant]
     Dosage: 1 MG, 2X/DAY
  8. LORAZEPAM [Concomitant]
     Dosage: 1 MG, AS NEEDED
  9. TRAMADOL HCL [Concomitant]
     Indication: PAIN
     Dosage: 50 MG, 1 TABLET AS NEEDED TID
     Route: 048
  10. DIGOXIN [Concomitant]
     Dosage: 0.125 MG, 1X/DAY
     Route: 048
  11. LANOXIN [Concomitant]
     Dosage: 0.125 MG, 1X/DAY
     Route: 048
  12. LEVAQUIN [Concomitant]
     Dosage: 500 MG, 1X/DAY
  13. OMEPRAZOLE [Concomitant]
     Dosage: 20 MG, 1X/DAY
     Route: 048
  14. MEDROL [Concomitant]
     Dosage: 4 MG, UNK
     Route: 048

REACTIONS (4)
  - Atrial fibrillation [Unknown]
  - Syncope [Unknown]
  - Drug effect incomplete [Unknown]
  - Drug intolerance [Unknown]
